FAERS Safety Report 7016612-5 (Version None)
Quarter: 2010Q3

REPORT INFORMATION
  Report Type: 
  Country: None (occurrence: None)
  Receive Date: 20100927
  Receipt Date: 20100916
  Transmission Date: 20110219
  Serious: Yes (Other)
  Sender: FDA-Public Use
  Company Number: B0664307A

PATIENT
  Sex: Male

DRUGS (4)
  1. SERETIDE [Suspect]
     Indication: CHRONIC OBSTRUCTIVE PULMONARY DISEASE
     Dosage: 500MCG PER DAY
     Route: 055
     Dates: start: 20090707
  2. SPIRIVA [Concomitant]
     Indication: CHRONIC OBSTRUCTIVE PULMONARY DISEASE
     Dosage: 18MCG PER DAY
     Route: 055
     Dates: start: 20090707
  3. DEPAS [Concomitant]
     Indication: ANXIETY
     Dosage: 1MG PER DAY
     Route: 048
     Dates: start: 20090707
  4. UNIPHYL [Concomitant]
     Indication: CHRONIC OBSTRUCTIVE PULMONARY DISEASE
     Dosage: 400MG PER DAY
     Route: 048
     Dates: start: 20090926

REACTIONS (7)
  - CREPITATIONS [None]
  - DECREASED APPETITE [None]
  - DYSPNOEA [None]
  - DYSPNOEA EXERTIONAL [None]
  - OROPHARYNGEAL PAIN [None]
  - PNEUMONIA [None]
  - SPUTUM DISCOLOURED [None]
